FAERS Safety Report 25621577 (Version 1)
Quarter: 2025Q3

REPORT INFORMATION
  Report Type: Report from Study
  Country: US (occurrence: US)
  Receive Date: 20250730
  Receipt Date: 20250730
  Transmission Date: 20251020
  Serious: Yes (Other)
  Sender: ALEXION PHARMACEUTICALS
  Company Number: US-AstraZeneca-CH-00919276A

PATIENT
  Age: 86 Year
  Sex: Male

DRUGS (3)
  1. ACALABRUTINIB [Suspect]
     Active Substance: ACALABRUTINIB
     Indication: B-cell type acute leukaemia
     Dosage: 100 MILLIGRAM, BID
  2. OZEMPIC [Concomitant]
     Active Substance: SEMAGLUTIDE
     Indication: Weight decreased
     Route: 065
  3. OZEMPIC [Concomitant]
     Active Substance: SEMAGLUTIDE
     Indication: Diabetes mellitus

REACTIONS (6)
  - Diabetes mellitus [Unknown]
  - Leukaemia [Unknown]
  - Weight decreased [Unknown]
  - Memory impairment [Unknown]
  - Cardiac disorder [Unknown]
  - General physical condition abnormal [Unknown]
